FAERS Safety Report 14563815 (Version 2)
Quarter: 2018Q2

REPORT INFORMATION
  Report Type: Report from Study
  Country: None (occurrence: US)
  Receive Date: 20180222
  Receipt Date: 20180522
  Transmission Date: 20180711
  Serious: No
  Sender: FDA-Public Use
  Company Number: US-AMAG PHARMACEUTICALS, INC.-AMAG201800352

PATIENT

DRUGS (1)
  1. INTRAROSA [Suspect]
     Active Substance: PRASTERONE
     Indication: DYSPAREUNIA
     Dosage: UNK
     Route: 067
     Dates: start: 201711

REACTIONS (2)
  - Therapeutic response unexpected [Unknown]
  - Personality change [Recovered/Resolved]

NARRATIVE: CASE EVENT DATE: 201712
